FAERS Safety Report 4669465-4 (Version None)
Quarter: 2005Q2

REPORT INFORMATION
  Report Type: 
  Country: None (occurrence: None)
  Receive Date: 20050519
  Receipt Date: 20050506
  Transmission Date: 20051028
  Serious: Yes (Life-Threatening)
  Sender: FDA-Public Use
  Company Number: 214362

PATIENT
  Age: 79 Year
  Sex: Female

DRUGS (4)
  1. MABTHERA(RITUXIMAB) [Suspect]
     Indication: CHRONIC LYMPHOCYTIC LEUKAEMIA
     Dosage: 650 MG, INTRAVENOUS
     Route: 042
     Dates: start: 20050407, end: 20050414
  2. ACETAMINOPHEN [Concomitant]
  3. PHENERGAN (PROMETHAZINE HYDROCHLORIDE0 [Concomitant]
  4. PREDNISONE [Concomitant]

REACTIONS (5)
  - HAEMOGLOBIN DECREASED [None]
  - NEUTROPENIA [None]
  - PLATELET COUNT DECREASED [None]
  - URINARY TRACT INFECTION [None]
  - WHITE BLOOD CELL COUNT DECREASED [None]
